FAERS Safety Report 7158821-0 (Version None)
Quarter: 2010Q4

REPORT INFORMATION
  Report Type: 
  Country: None (occurrence: None)
  Receive Date: 20101214
  Receipt Date: 20100707
  Transmission Date: 20110411
  Serious: No
  Sender: FDA-Public Use
  Company Number: US-ASTRAZENECA-2010SE31630

PATIENT
  Age: 71 Year
  Sex: Male

DRUGS (12)
  1. ROSUVASTATIN [Suspect]
     Indication: CARDIAC DISORDER
     Route: 048
     Dates: start: 20080101
  2. LIPITOR [Suspect]
     Route: 048
  3. NIASPAN [Suspect]
     Indication: CARDIAC DISORDER
     Route: 048
     Dates: start: 20000101
  4. METOPROLOL SUCCINATE [Concomitant]
     Indication: HYPERTENSION
  5. ACETYLSALICYLIC ACID [Concomitant]
     Indication: BLOOD DISORDER
  6. GLAUCOMA MEDICATION [Concomitant]
     Indication: GLAUCOMA
  7. PANTOPRAZOLE [Concomitant]
     Indication: GASTROOESOPHAGEAL REFLUX DISEASE
  8. GLIPIZIDE [Concomitant]
     Indication: DIABETES MELLITUS
  9. TRIMETHOPRIM [Concomitant]
  10. TRAMADOL [Concomitant]
     Indication: ARTHRITIS
  11. DUTASTERIDE [Concomitant]
     Indication: BLOOD URINE PRESENT
  12. TERAZOSIN HCL [Concomitant]
     Indication: BLOOD URINE PRESENT

REACTIONS (2)
  - FLUSHING [None]
  - MYALGIA [None]
